FAERS Safety Report 7444573-3 (Version None)
Quarter: 2011Q2

REPORT INFORMATION
  Report Type: 
  Country: None (occurrence: None)
  Receive Date: 20110429
  Receipt Date: 20110426
  Transmission Date: 20111010
  Serious: Yes (Death, Other)
  Sender: FDA-Public Use
  Company Number: GB-PFIZER INC-2011089490

PATIENT
  Age: 41 Year
  Sex: Female

DRUGS (1)
  1. SILDENAFIL CITRATE [Suspect]
     Dosage: UNK

REACTIONS (3)
  - PULMONARY HYPERTENSIVE CRISIS [None]
  - CHOLECYSTECTOMY [None]
  - DEATH [None]
